FAERS Safety Report 8997745 (Version 1)
Quarter: 2013Q1

REPORT INFORMATION
  Report Type: Report from Study
  Country: DE (occurrence: DE)
  Receive Date: 20130104
  Receipt Date: 20130104
  Transmission Date: 20140127
  Serious: Yes (Life-Threatening, Hospitalization, Other)
  Sender: FDA-Public Use
  Company Number: DE-ROCHE-777791

PATIENT
  Age: 69 Year
  Sex: Male
  Weight: 103 kg

DRUGS (20)
  1. CAPECITABINE [Suspect]
     Indication: RECTAL CANCER
     Dosage: LAST DOSE BEFORE SAE: 18 FEBRUARY 2011.SCHEDULE: 825 MG/M2 TWICE DAILY ON DAY 1-33EXCLUDING WEEKENDS
     Route: 048
  2. METOPROLOL SUCCINATE [Concomitant]
     Indication: ARRHYTHMIA
     Dosage: SCHEDULE REPORTED AS: 1-0-1
     Route: 048
  3. METOPROLOL SUCCINATE [Concomitant]
     Route: 048
  4. FUROSEMIDE [Concomitant]
     Indication: OEDEMA
     Dosage: SCHEDULE REPORTED AS   1-1/2-0
     Route: 048
  5. MOXONIDINE [Concomitant]
     Indication: HYPERTENSION
     Dosage: SCHEDULE REPORTED AS: 1-0-1
     Route: 048
  6. ALLOPURINOL [Concomitant]
     Indication: HYPERURICAEMIA
     Dosage: SCHEDULE REPORTED AS: 0-0-1
     Route: 048
  7. EZETIMIBE [Concomitant]
     Indication: HYPERCHOLESTEROLAEMIA
     Dosage: SCHEDULE REPORTED AS: 0-0-1
     Route: 048
  8. SIMVASTATIN [Concomitant]
     Indication: HYPERCHOLESTEROLAEMIA
     Dosage: SCHEDULE REPORTED AS: 0-0-1
     Route: 048
  9. SIMVASTATIN [Concomitant]
     Dosage: SCHEDULE: 1-0-0
     Route: 048
  10. RAMIPRIL [Concomitant]
     Indication: HYPERTENSION
     Dosage: SCHEDULE REPORTED AS: 1-0-1
     Route: 048
  11. RAMIPRIL [Concomitant]
     Route: 048
  12. ACETYLSALICYLSYRE [Concomitant]
     Indication: HYPERTENSION
     Dosage: SCHEDULE REPORTED AS: 1-0-0
     Route: 048
  13. RANITIDIN [Concomitant]
     Indication: GASTROOESOPHAGEAL REFLUX DISEASE
     Dosage: SCHEDULE REPORTED AS: 1-0-1
     Route: 048
  14. HUMAN INSULIN [Concomitant]
     Indication: DIABETES MELLITUS
     Dosage: SCHEDULE REPORTED AS: 6 IE 1-0-1
     Route: 058
  15. AMLODIPIN [Concomitant]
     Indication: HYPERTENSION
     Route: 048
  16. L-THYROXIN [Concomitant]
     Indication: THYROIDECTOMY
     Route: 048
  17. SIMVASTATIN [Concomitant]
     Indication: HYPERCHOLESTEROLAEMIA
     Route: 048
  18. PANTOPRAZOLE [Concomitant]
     Dosage: SCHEDULE: 1-0-0
     Route: 048
  19. METFORMIN [Concomitant]
     Indication: HYPERGLYCAEMIA
     Dosage: SCHEDULE: 1-0-1
     Route: 048
  20. FERRO SANOL [Concomitant]
     Indication: ANAEMIA
     Dosage: SCHEDULE: 1-1-0
     Route: 048

REACTIONS (8)
  - Pneumonia aspiration [Recovered/Resolved]
  - Staphylococcal sepsis [Recovered/Resolved]
  - Left ventricular dysfunction [Recovered/Resolved]
  - Tachyarrhythmia [Recovered/Resolved]
  - Renal failure acute [Recovered/Resolved]
  - Subileus [Recovered/Resolved]
  - Right ventricular dysfunction [Recovered/Resolved]
  - Ventricular tachycardia [Unknown]
